FAERS Safety Report 4576659-5 (Version None)
Quarter: 2005Q1

REPORT INFORMATION
  Report Type: 
  Country: None (occurrence: None)
  Receive Date: 20050127
  Receipt Date: 20041007
  Transmission Date: 20050727
  Serious: No
  Sender: FDA-Public Use
  Company Number: USA041080452

PATIENT
  Age: 42 Year
  Sex: Female
  Weight: 86 kg

DRUGS (7)
  1. STRATTERA [Suspect]
     Indication: ATTENTION DEFICIT/HYPERACTIVITY DISORDER
     Dosage: 80 MG
     Dates: start: 20040601
  2. LEVOTHYROXINE [Concomitant]
  3. KLONOPIN [Concomitant]
  4. WELLBUTRIN (IBUPROPION HYDROCHLORIDE) [Concomitant]
  5. FLEXERIL [Concomitant]
  6. VIOXX [Concomitant]
  7. TYLENOL [Concomitant]

REACTIONS (6)
  - ASTHENIA [None]
  - CONSTIPATION [None]
  - DIZZINESS [None]
  - NAUSEA [None]
  - VOMITING [None]
  - WEIGHT DECREASED [None]
